FAERS Safety Report 12238272 (Version 3)
Quarter: 2016Q3

REPORT INFORMATION
  Report Type: Spontaneous
  Country: JP (occurrence: JP)
  Receive Date: 20160405
  Receipt Date: 20160801
  Transmission Date: 20161109
  Serious: Yes (Other)
  Sender: FDA-Public Use
  Company Number: JP-PFIZER INC-2016191900

PATIENT
  Age: 75 Year
  Sex: Male

DRUGS (2)
  1. REVATIO [Suspect]
     Active Substance: SILDENAFIL CITRATE
     Indication: PULMONARY ARTERIAL HYPERTENSION
     Dosage: 60 MG, DAILY
     Route: 048
     Dates: end: 20160318
  2. HEPARIN [Suspect]
     Active Substance: HEPARIN SODIUM
     Indication: PULMONARY ARTERIAL HYPERTENSION
     Dosage: UNK
     Dates: end: 20160318

REACTIONS (3)
  - Melaena [Recovering/Resolving]
  - Gastric haemorrhage [Unknown]
  - Gastric disorder [Unknown]

NARRATIVE: CASE EVENT DATE: 20160318
